FAERS Safety Report 20736575 (Version 2)
Quarter: 2022Q2

REPORT INFORMATION
  Report Type: Spontaneous
  Country: US (occurrence: US)
  Receive Date: 20220421
  Receipt Date: 20220524
  Transmission Date: 20220720
  Serious: Yes (Other)
  Sender: FDA-Public Use
  Company Number: US-BRISTOL-MYERS SQUIBB COMPANY-2022-024220

PATIENT
  Age: 73 Year
  Sex: Female
  Weight: 118.39 kg

DRUGS (2)
  1. POMALYST [Suspect]
     Active Substance: POMALIDOMIDE
     Indication: Plasma cell myeloma
     Dosage: 21 IN 28 DAYS
     Route: 048
     Dates: start: 20210701
  2. FUROSEMIDE [Concomitant]
     Active Substance: FUROSEMIDE
     Indication: Product used for unknown indication
     Route: 065

REACTIONS (7)
  - Lymphoedema [Not Recovered/Not Resolved]
  - Haemorrhage [Recovering/Resolving]
  - Urinary tract infection [Recovering/Resolving]
  - Visual impairment [Recovering/Resolving]
  - Limb discomfort [Recovering/Resolving]
  - Prescribed underdose [Unknown]
  - Muscle spasms [Not Recovered/Not Resolved]
